FAERS Safety Report 4784505-X (Version None)
Quarter: 2005Q3

REPORT INFORMATION
  Report Type: 
  Country: None (occurrence: None)
  Receive Date: 20050930
  Receipt Date: 20050929
  Transmission Date: 20060218
  Serious: Yes (Congenital Anomaly)
  Sender: FDA-Public Use
  Company Number: US-GLAXOSMITHKLINE-A0576323A

PATIENT

DRUGS (6)
  1. LAMICTAL [Suspect]
     Indication: EPILEPSY
     Dates: start: 20050526
  2. FOLIC ACID [Concomitant]
  3. MULTI-VITAMIN [Concomitant]
  4. B-12 VITAMIN [Concomitant]
  5. LEXAPRO [Concomitant]
  6. ATIVAN [Concomitant]

REACTIONS (3)
  - CLEFT LIP [None]
  - CLEFT PALATE [None]
  - DRUG EXPOSURE DURING PREGNANCY [None]
